FAERS Safety Report 8224678 (Version 2)
Quarter: 2012Q4

REPORT INFORMATION
  Report Type: Report from Study
  Country: ES (occurrence: ES)
  Receive Date: 20111103
  Receipt Date: 20121227
  Transmission Date: 20130627
  Serious: Yes (Life-Threatening)
  Sender: FDA-Public Use
  Company Number: ES-CELGENEUS-144-C5013-11033552

PATIENT
  Age: 74 Year
  Sex: Male
  Weight: 67.5 kg

DRUGS (10)
  1. CC-5013 [Suspect]
     Indication: NON-HODGKIN^S LYMPHOMA
     Dosage: 25 Milligram
     Route: 048
     Dates: start: 20100601
  2. CC-5013 [Suspect]
     Dosage: 25 Milligram
     Route: 048
     Dates: start: 20110127, end: 20110210
  3. CLEXANE [Concomitant]
     Indication: THROMBOPHLEBITIS
     Dosage: 40 Milligram
     Route: 058
     Dates: start: 20100620
  4. MEGESTROL ACETATE [Concomitant]
     Indication: ANOREXIA
     Dosage: 320 Milligram
     Route: 048
     Dates: start: 20110120, end: 20110209
  5. SPASMOCTYL [Concomitant]
     Indication: ABDOMINAL PAIN
     Route: 048
     Dates: start: 20110203, end: 20110209
  6. SIMETICONE [Concomitant]
     Indication: AEROPHAGIA
     Route: 048
     Dates: start: 20110203, end: 20110209
  7. BUSCOPAN [Concomitant]
     Indication: ABDOMINAL PAIN
     Route: 048
     Dates: start: 20110127
  8. BUSCAPINE [Concomitant]
     Indication: ABDOMINAL PAIN
     Dosage: 30 Milligram
     Route: 048
     Dates: start: 20110209
  9. OMEPRAZOLE [Concomitant]
     Indication: PROPHYLAXIS
     Dosage: 40 Milligram
     Route: 048
     Dates: start: 20100422
  10. DOMPERIDONA GAMIR [Concomitant]
     Indication: VOMITING
     Dosage: 2 Milligram/Milliliters
     Route: 048
     Dates: start: 20110129

REACTIONS (1)
  - Colon cancer metastatic [Not Recovered/Not Resolved]
